FAERS Safety Report 15250277 (Version 1)
Quarter: 2018Q3

REPORT INFORMATION
  Report Type: Spontaneous
  Country: US (occurrence: US)
  Receive Date: 20180716
  Receipt Date: 20180716
  Transmission Date: 20181010
  Serious: Yes (Other)
  Sender: FDA-Public Use
  Company Number: None

PATIENT
  Age: 89 Year
  Sex: Female
  Weight: 67.5 kg

DRUGS (14)
  1. VITAMIN D3 [Concomitant]
     Active Substance: CHOLECALCIFEROL
  2. LABETALOL [Concomitant]
     Active Substance: LABETALOL\LABETALOL HYDROCHLORIDE
  3. MUCINEXD [Concomitant]
  4. SENNA [Concomitant]
     Active Substance: SENNA LEAF\SENNOSIDES\SENNOSIDES A AND B
  5. LOSARTAN. [Concomitant]
     Active Substance: LOSARTAN
  6. HYDROXYUREA. [Concomitant]
     Active Substance: HYDROXYUREA
  7. ASPIRIN. [Concomitant]
     Active Substance: ASPIRIN
  8. ESCITALOPRAM [Concomitant]
     Active Substance: ESCITALOPRAM OXALATE
  9. CALCIUM + D [Concomitant]
     Active Substance: CALCIUM\VITAMIN D
  10. CAPECITABINE. [Suspect]
     Active Substance: CAPECITABINE
     Indication: BREAST CANCER
     Route: 048
     Dates: start: 20170424, end: 20180716
  11. ATORVASTATIN [Concomitant]
     Active Substance: ATORVASTATIN
  12. ISOSORBIDE. [Concomitant]
     Active Substance: ISOSORBIDE
  13. CLONIDINE. [Concomitant]
     Active Substance: CLONIDINE
  14. VIMPAT [Concomitant]
     Active Substance: LACOSAMIDE

REACTIONS (1)
  - Disease progression [None]
